FAERS Safety Report 23120723 (Version 1)
Quarter: 2023Q4

REPORT INFORMATION
  Report Type: Spontaneous
  Country: US (occurrence: US)
  Receive Date: 20231029
  Receipt Date: 20231029
  Transmission Date: 20240110
  Serious: No
  Sender: FDA-Public Use
  Company Number: US-TEVA-2023-US-2936431

PATIENT
  Sex: Male

DRUGS (1)
  1. ALBUTEROL SULFATE [Suspect]
     Active Substance: ALBUTEROL SULFATE
     Indication: Product used for unknown indication
     Dosage: INHALATION AEROSOL
     Route: 065

REACTIONS (4)
  - Nasopharyngitis [Unknown]
  - Wrong technique in device usage process [Unknown]
  - Product cleaning inadequate [Unknown]
  - Device delivery system issue [Unknown]
